FAERS Safety Report 5357681-8 (Version None)
Quarter: 2007Q2

REPORT INFORMATION
  Report Type: 
  Country: None (occurrence: None)
  Receive Date: 20070614
  Receipt Date: 20070606
  Transmission Date: 20071010
  Serious: Yes (Life-Threatening)
  Sender: FDA-Public Use
  Company Number: GB-PFIZER INC-2007046974

PATIENT
  Age: 30 Year
  Sex: Female
  Weight: 70 kg

DRUGS (1)
  1. MISOPROSTOL [Suspect]
     Indication: POSTPARTUM HAEMORRHAGE
     Route: 015

REACTIONS (1)
  - HYSTERECTOMY [None]
